FAERS Safety Report 15814689 (Version 1)
Quarter: 2019Q1

REPORT INFORMATION
  Report Type: Report from Study
  Country: US (occurrence: US)
  Receive Date: 20190111
  Receipt Date: 20190111
  Transmission Date: 20190417
  Serious: Yes (Other)
  Sender: FDA-Public Use
  Company Number: US-GILEAD-2018-0345555

PATIENT
  Age: 57 Year
  Sex: Male
  Weight: 102.2 kg

DRUGS (50)
  1. AMLODIPINE [Concomitant]
     Active Substance: AMLODIPINE BESYLATE
  2. NORCO [Concomitant]
     Active Substance: ACETAMINOPHEN\HYDROCODONE BITARTRATE
  3. DOCUSATE SODIUM. [Concomitant]
     Active Substance: DOCUSATE SODIUM
  4. INSULIN LISPRO [Concomitant]
     Active Substance: INSULIN LISPRO
  5. MAGNESIUM SULFATE. [Concomitant]
     Active Substance: MAGNESIUM SULFATE
  6. ALLOPURINOL. [Concomitant]
     Active Substance: ALLOPURINOL
  7. MIDAZOLAM [Concomitant]
     Active Substance: MIDAZOLAM HYDROCHLORIDE
  8. CYCLOPHOSPHAMIDE. [Suspect]
     Active Substance: CYCLOPHOSPHAMIDE
     Indication: BONE MARROW CONDITIONING REGIMEN
     Dosage: 500 MG/M2, QD
     Route: 042
     Dates: start: 20180608, end: 20180610
  9. BUPROPION. [Concomitant]
     Active Substance: BUPROPION
  10. SIMVASTATIN. [Concomitant]
     Active Substance: SIMVASTATIN
  11. LOSARTAN. [Concomitant]
     Active Substance: LOSARTAN
  12. PAROXETINE. [Concomitant]
     Active Substance: PAROXETINE
  13. DIPHENHYDRAMINE. [Concomitant]
     Active Substance: DIPHENHYDRAMINE
  14. KEPPRA [Concomitant]
     Active Substance: LEVETIRACETAM
  15. FENTANYL. [Concomitant]
     Active Substance: FENTANYL
  16. TAMSULOSIN [Concomitant]
     Active Substance: TAMSULOSIN
  17. CYCLOPHOSPHAMIDE. [Suspect]
     Active Substance: CYCLOPHOSPHAMIDE
     Dosage: 500 MG/M2, QD
     Route: 042
     Dates: start: 20181219, end: 20181221
  18. GLIPIZIDE. [Concomitant]
     Active Substance: GLIPIZIDE
  19. CLARITIN [Concomitant]
     Active Substance: LORATADINE
  20. COMPAZINE                          /00013302/ [Concomitant]
     Active Substance: PROCHLORPERAZINE EDISYLATE
  21. MORPHINE [Concomitant]
     Active Substance: MORPHINE
  22. FLUDARABINE [Suspect]
     Active Substance: FLUDARABINE PHOSPHATE
     Dosage: 30 MG/M2, QD
     Route: 042
     Dates: start: 20181219, end: 20181221
  23. PANTOPRAZOLE [Concomitant]
     Active Substance: PANTOPRAZOLE
  24. METFORMIN [Concomitant]
     Active Substance: METFORMIN HYDROCHLORIDE
  25. DEXTROSE. [Concomitant]
     Active Substance: DEXTROSE
  26. ACYCLOVIR                          /00587301/ [Concomitant]
     Active Substance: ACYCLOVIR
  27. NITROFURANTOIN MONOHYDRATE MACROCRYSTALS [Concomitant]
     Active Substance: NITROFURANTOIN\NITROFURANTOIN MONOHYDRATE
  28. MODAFINIL. [Concomitant]
     Active Substance: MODAFINIL
  29. ADVAIR HFA [Concomitant]
     Active Substance: FLUTICASONE PROPIONATE\SALMETEROL XINAFOATE
  30. PROMETHAZINE [Concomitant]
     Active Substance: PROMETHAZINE\PROMETHAZINE HYDROCHLORIDE
  31. ZOFRAN [Concomitant]
     Active Substance: ONDANSETRON HYDROCHLORIDE
  32. KYTRIL [Concomitant]
     Active Substance: GRANISETRON HYDROCHLORIDE
  33. CIPROFLOXACIN. [Concomitant]
     Active Substance: CIPROFLOXACIN
  34. DEXAMETHASONE. [Concomitant]
     Active Substance: DEXAMETHASONE
  35. HALOPERIDOL LACTATE. [Concomitant]
     Active Substance: HALOPERIDOL LACTATE
  36. KETOROLAC [Concomitant]
     Active Substance: KETOROLAC\KETOROLAC TROMETHAMINE
  37. PHENAZOPYRIDINE. [Concomitant]
     Active Substance: PHENAZOPYRIDINE
  38. AXICABTAGENE CILOLEUCEL [Suspect]
     Active Substance: AXICABTAGENE CILOLEUCEL
     Indication: NON-HODGKIN^S LYMPHOMA UNSPECIFIED HISTOLOGY INDOLENT
     Dosage: 68 ML, ONCE
     Route: 042
     Dates: start: 20181224, end: 20181224
  39. GLUCAGON. [Concomitant]
     Active Substance: GLUCAGON
  40. PROPOFOL. [Concomitant]
     Active Substance: PROPOFOL
  41. FLUDARABINE [Suspect]
     Active Substance: FLUDARABINE PHOSPHATE
     Indication: BONE MARROW CONDITIONING REGIMEN
     Dosage: 30 MG/M2, QD
     Route: 042
     Dates: start: 20180608, end: 20180610
  42. SENNA                              /00142201/ [Concomitant]
     Active Substance: SENNA LEAF
  43. ACETAMINOPHEN. [Concomitant]
     Active Substance: ACETAMINOPHEN
  44. LEVOTHYROXINE. [Concomitant]
     Active Substance: LEVOTHYROXINE
  45. OXYBUTYNIN. [Concomitant]
     Active Substance: OXYBUTYNIN CHLORIDE
  46. PHENYLEPHRINE [Concomitant]
     Active Substance: PHENYLEPHRINE\PHENYLEPHRINE HYDROCHLORIDE
  47. PEGFILGRASTIM [Concomitant]
     Active Substance: PEGFILGRASTIM
     Dosage: UNK
     Dates: start: 20180614
  48. OXYCODONE [Concomitant]
     Active Substance: OXYCODONE
  49. LIDOCAINE. [Concomitant]
     Active Substance: LIDOCAINE
  50. SODIUM CHLORIDE. [Concomitant]
     Active Substance: SODIUM CHLORIDE

REACTIONS (2)
  - Deep vein thrombosis [Recovered/Resolved]
  - Cerebrovascular accident [Recovered/Resolved]

NARRATIVE: CASE EVENT DATE: 20180613
